FAERS Safety Report 8143856 (Version 2)
Quarter: 2015Q1

REPORT INFORMATION
  Report Type: Spontaneous
  Country: US (occurrence: US)
  Receive Date: 20110920
  Receipt Date: 20150325
  Transmission Date: 20150721
  Serious: Yes (Other)
  Sender: FDA-Public Use
  Company Number: US-SANOFI-AVENTIS-2011SA057377

PATIENT
  Age: 67 Year
  Sex: Male
  Weight: 84 kg

DRUGS (4)
  1. LOVENOX [Suspect]
     Active Substance: ENOXAPARIN SODIUM
     Indication: THROMBOSIS
     Route: 065
     Dates: start: 2009, end: 2009
  2. LOVENOX [Suspect]
     Active Substance: ENOXAPARIN SODIUM
     Indication: THROMBOSIS
     Route: 065
     Dates: start: 201106, end: 201106
  3. LOVENOX [Suspect]
     Active Substance: ENOXAPARIN SODIUM
     Indication: THROMBOSIS
     Route: 065
     Dates: start: 201106, end: 201106
  4. LOVENOX [Suspect]
     Active Substance: ENOXAPARIN SODIUM
     Indication: THROMBOSIS
     Route: 065
     Dates: start: 201106

REACTIONS (12)
  - Fatigue [Unknown]
  - Haematoma [Unknown]
  - Brain oedema [Not Recovered/Not Resolved]
  - Injection site pain [Unknown]
  - Injection site haemorrhage [Not Recovered/Not Resolved]
  - Weight decreased [Unknown]
  - Inappropriate schedule of drug administration [Unknown]
  - Immobile [Unknown]
  - Thrombosis [Unknown]
  - Eye haemorrhage [Unknown]
  - Injection site reaction [Unknown]
  - Abdominal distension [Unknown]

NARRATIVE: CASE EVENT DATE: 2009
